FAERS Safety Report 10170508 (Version 3)
Quarter: 2014Q2

REPORT INFORMATION
  Report Type: Spontaneous
  Country: JP (occurrence: JP)
  Receive Date: 20140513
  Receipt Date: 20140609
  Transmission Date: 20141212
  Serious: Yes (Death)
  Sender: FDA-Public Use
  Company Number: PHHY2014JP057236

PATIENT
  Age: 68 Year
  Sex: Female

DRUGS (1)
  1. EXJADE [Suspect]
     Indication: ACUTE MYELOID LEUKAEMIA
     Dosage: 20.9 MG/KG, DAILY
     Route: 048

REACTIONS (1)
  - Acute myeloid leukaemia [Fatal]
